FAERS Safety Report 6143921-4 (Version None)
Quarter: 2009Q2

REPORT INFORMATION
  Report Type: 
  Country: None (occurrence: None)
  Receive Date: 20090406
  Receipt Date: 20090325
  Transmission Date: 20091009
  Serious: Yes (Other)
  Sender: FDA-Public Use
  Company Number: US-PFIZER INC-2009188947

PATIENT

DRUGS (1)
  1. NARDIL [Suspect]

REACTIONS (2)
  - HEPATOMEGALY [None]
  - SPLENOMEGALY [None]
